FAERS Safety Report 10933955 (Version 2)
Quarter: 2015Q2

REPORT INFORMATION
  Report Type: Spontaneous
  Country: GB (occurrence: None)
  Receive Date: 20150318
  Receipt Date: 20150526
  Transmission Date: 20150821
  Serious: Yes (Death, Hospitalization)
  Sender: FDA-Public Use
  Company Number: FK201501241

PATIENT
  Age: 72 Year
  Sex: Male
  Weight: 82.3 kg

DRUGS (13)
  1. GEMCITABINE [Suspect]
     Active Substance: GEMCITABINE\GEMCITABINE HYDROCHLORIDE
     Indication: BLADDER CANCER
     Dosage: NOT OTHERWISE SPECIFIED
     Route: 042
     Dates: start: 20150210, end: 20150210
  2. DEXAMETHASONE (DEXAMETHASONE) [Concomitant]
     Active Substance: DEXAMETHASONE
  3. GRANISETRON (GRANISETRON) [Concomitant]
     Active Substance: GRANISETRON
  4. LEVOMEPROMAZINE (LEVOMEPROMAZINE) [Concomitant]
     Active Substance: LEVOMEPROMAZINE
  5. OMEPRAZOLE (OMEPRAZOLE) [Concomitant]
     Active Substance: OMEPRAZOLE
  6. ALFENTANIL (ALFENTANIL) [Concomitant]
  7. BISACODYL (BISACODYL) [Concomitant]
     Active Substance: BISACODYL
  8. MACROGOL (MACROGOL) [Concomitant]
  9. CARBOPLATIN (CARBOPLATIN) [Suspect]
     Active Substance: CARBOPLATIN
     Indication: BLADDER CANCER
     Dosage: NOT OTHERWISE SPECIFIED
     Route: 042
     Dates: start: 20150210, end: 20150210
  10. AMLODIPINE [Concomitant]
     Active Substance: AMLODIPINE BESYLATE
  11. PARACETAMOL (PARACETAMOL) [Concomitant]
     Active Substance: ACETAMINOPHEN
  12. METOCLOPRAMIDE (METOCLOPRAMIDE) [Concomitant]
     Active Substance: METOCLOPRAMIDE
  13. FENTANYL (FENTANYL) [Concomitant]
     Active Substance: FENTANYL

REACTIONS (11)
  - Toxicity to various agents [None]
  - Pyrexia [None]
  - Thrombocytopenia [None]
  - Nausea [None]
  - General physical health deterioration [None]
  - Dehydration [None]
  - Urosepsis [None]
  - Renal failure [None]
  - Hepatic failure [None]
  - Vomiting [None]
  - Neutropenia [None]

NARRATIVE: CASE EVENT DATE: 20150211
